FAERS Safety Report 6647295-1 (Version None)
Quarter: 2010Q1

REPORT INFORMATION
  Report Type: 
  Country: None (occurrence: None)
  Receive Date: 20100323
  Receipt Date: 20100312
  Transmission Date: 20100710
  Serious: Yes (Other)
  Sender: FDA-Public Use
  Company Number: B0612833A

PATIENT
  Sex: Female

DRUGS (2)
  1. RELENZA [Suspect]
     Indication: INFLUENZA
     Dosage: 20MG PER DAY
     Route: 055
     Dates: start: 20091103, end: 20091108
  2. CALONAL [Concomitant]
     Indication: ANTIPYRESIS

REACTIONS (3)
  - ALOPECIA [None]
  - ALOPECIA AREATA [None]
  - ALOPECIA TOTALIS [None]
